FAERS Safety Report 5126889-9 (Version None)
Quarter: 2006Q4

REPORT INFORMATION
  Report Type: 
  Country: None (occurrence: None)
  Receive Date: 20060830
  Receipt Date: 20060404
  Transmission Date: 20070319
  Serious: Yes (Other)
  Sender: FDA-Public Use
  Company Number: US200604000733

PATIENT
  Age: 65 Year
  Sex: Female

DRUGS (3)
  1. SYMBYAX [Suspect]
     Indication: DEPRESSION
     Dates: start: 20050101, end: 20060329
  2. TRANXENE [Concomitant]
  3. PREMARIN [Concomitant]

REACTIONS (1)
  - WEIGHT INCREASED [None]
